FAERS Safety Report 6184348-9 (Version None)
Quarter: 2009Q2

REPORT INFORMATION
  Report Type: 
  Country: None (occurrence: None)
  Receive Date: 20090508
  Receipt Date: 20090501
  Transmission Date: 20091009
  Serious: Yes (Death, Hospitalization)
  Sender: FDA-Public Use
  Company Number: A0728608A

PATIENT
  Age: 62 Year
  Sex: Male
  Weight: 93.2 kg

DRUGS (6)
  1. AVANDIA [Suspect]
     Route: 048
     Dates: end: 20060512
  2. HYDROCODONE BITARTRATE [Concomitant]
  3. PRILOSEC [Concomitant]
  4. TRAMADOL HCL [Concomitant]
  5. ULTRACET [Concomitant]
  6. GLYBURIDE [Concomitant]

REACTIONS (7)
  - CARDIAC DEATH [None]
  - CEREBROVASCULAR ACCIDENT [None]
  - CORONARY ARTERY DISEASE [None]
  - DEATH [None]
  - HEART INJURY [None]
  - MYOCARDIAL INFARCTION [None]
  - PULMONARY OEDEMA [None]
